FAERS Safety Report 25096911 (Version 1)
Quarter: 2025Q1

REPORT INFORMATION
  Report Type: Spontaneous
  Country: US (occurrence: US)
  Receive Date: 20250319
  Receipt Date: 20250319
  Transmission Date: 20250408
  Serious: Yes (Other)
  Sender: UCB
  Company Number: US-UCBSA-2025014936

PATIENT
  Sex: Female

DRUGS (7)
  1. NAYZILAM [Interacting]
     Active Substance: MIDAZOLAM
     Indication: Seizure
  2. BRIVIACT [Interacting]
     Active Substance: BRIVARACETAM
     Indication: Seizure
  3. VIMPAT [Interacting]
     Active Substance: LACOSAMIDE
     Indication: Seizure
  4. ONFI [Concomitant]
     Active Substance: CLOBAZAM
     Indication: Seizure
  5. LORAZEPAM [Concomitant]
     Active Substance: LORAZEPAM
     Indication: Product used for unknown indication
  6. XCOPRI [Concomitant]
     Active Substance: CENOBAMATE
     Indication: Seizure
  7. NORETHINDRONE [Concomitant]
     Active Substance: NORETHINDRONE
     Indication: Product used for unknown indication

REACTIONS (2)
  - Impaired gastric emptying [Unknown]
  - Drug interaction [Unknown]
